FAERS Safety Report 13628495 (Version 4)
Quarter: 2019Q2

REPORT INFORMATION
  Report Type: Spontaneous
  Country: US (occurrence: US)
  Receive Date: 20170608
  Receipt Date: 20190417
  Transmission Date: 20190711
  Serious: Yes (Other)
  Sender: FDA-Public Use
  Company Number: US-PFIZER INC-2017249384

PATIENT
  Age: 74 Year
  Sex: Female
  Weight: 87.9 kg

DRUGS (3)
  1. DETROL LA [Suspect]
     Active Substance: TOLTERODINE TARTRATE
     Indication: POLLAKIURIA
  2. DETROL LA [Suspect]
     Active Substance: TOLTERODINE TARTRATE
     Indication: NEUROGENIC BLADDER
     Dosage: 4 MG, 1X/DAY
     Route: 048
  3. DETROL LA [Suspect]
     Active Substance: TOLTERODINE TARTRATE
     Indication: URINARY INCONTINENCE
     Dosage: 4 MG, DAILY
     Route: 048
     Dates: end: 201903

REACTIONS (2)
  - Kidney infection [Recovered/Resolved]
  - Fungal infection [Recovered/Resolved]
